FAERS Safety Report 5487897-1 (Version None)
Quarter: 2007Q4

REPORT INFORMATION
  Report Type: 
  Country: None (occurrence: None)
  Receive Date: 20071017
  Receipt Date: 20071005
  Transmission Date: 20080405
  Serious: Yes (Life-Threatening)
  Sender: FDA-Public Use
  Company Number: US-ELI_LILLY_AND_COMPANY-US200612000206

PATIENT
  Sex: Female
  Weight: 51.247 kg

DRUGS (7)
  1. FORTEO [Suspect]
     Indication: OSTEOPOROSIS
     Dosage: 20 UG, DAILY (1/D)
     Dates: start: 20061121
  2. FORTEO [Suspect]
     Dosage: 20 UG, DAILY (1/D)
     Dates: start: 20070101
  3. FORTEO [Suspect]
     Dosage: 20 UG, DAILY (1/D)
     Dates: start: 20070101
  4. SYNTHROID [Concomitant]
  5. ACTONEL                                 /USA/ [Concomitant]
  6. CALCIUM [Concomitant]
  7. VITAMINS [Concomitant]

REACTIONS (9)
  - BONE FORMATION INCREASED [None]
  - BREAST CANCER [None]
  - ERYTHEMA [None]
  - JOINT SWELLING [None]
  - MUSCULOSKELETAL STIFFNESS [None]
  - OEDEMA PERIPHERAL [None]
  - PRURITUS GENERALISED [None]
  - RASH ERYTHEMATOUS [None]
  - WEIGHT DECREASED [None]
